FAERS Safety Report 9174600 (Version 1)
Quarter: 2013Q1

REPORT INFORMATION
  Report Type: Spontaneous
  Country: US (occurrence: US)
  Receive Date: 20130320
  Receipt Date: 20130320
  Transmission Date: 20140127
  Serious: No
  Sender: FDA-Public Use
  Company Number: US-MYLANLABS-2013S1000577

PATIENT
  Age: 54 Year
  Sex: Female

DRUGS (3)
  1. ESTRADIOL TRANSDERMAL SYSTEM, USP [Suspect]
     Indication: HORMONE REPLACEMENT THERAPY
     Dosage: X1 PATCH
     Route: 062
     Dates: start: 20121219, end: 20121230
  2. LIPITOR [Concomitant]
     Indication: BLOOD CHOLESTEROL INCREASED
  3. PROZAC [Concomitant]

REACTIONS (2)
  - Application site burn [Recovered/Resolved]
  - Affect lability [Recovered/Resolved]
